FAERS Safety Report 23117972 (Version 2)
Quarter: 2023Q4

REPORT INFORMATION
  Report Type: Spontaneous
  Country: US (occurrence: US)
  Receive Date: 20231027
  Receipt Date: 20231222
  Transmission Date: 20240109
  Serious: No
  Sender: FDA-Public Use
  Company Number: US-PFIZER INC-202101748566

PATIENT
  Age: 59 Year
  Sex: Male

DRUGS (2)
  1. XELJANZ [Suspect]
     Active Substance: TOFACITINIB CITRATE
     Indication: Chronic actinic dermatitis
     Dosage: 5 MG, 2X/DAY
     Route: 048
     Dates: start: 20210212
  2. XELJANZ [Suspect]
     Active Substance: TOFACITINIB CITRATE
     Indication: Dermatitis atopic

REACTIONS (4)
  - Hypersensitivity [Unknown]
  - Blood pressure abnormal [Unknown]
  - Hypercholesterolaemia [Unknown]
  - Off label use [Unknown]

NARRATIVE: CASE EVENT DATE: 20210212
